FAERS Safety Report 4417887-9 (Version None)
Quarter: 2004Q2

REPORT INFORMATION
  Report Type: 
  Country: None (occurrence: None)
  Receive Date: 20040621
  Receipt Date: 20040225
  Transmission Date: 20050107
  Serious: Yes (Hospitalization)
  Sender: FDA-Public Use
  Company Number: PHEH2003US10318

PATIENT
  Age: 62 Year
  Sex: Male

DRUGS (5)
  1. ZOMETA [Suspect]
     Indication: BONE PAIN
     Dosage: 4 MG, UNK; INTRAVENOUS
     Route: 042
     Dates: end: 20030401
  2. LUPRON [Concomitant]
  3. LIPITOR [Concomitant]
  4. TOPRL XL (METOPROLOL SUCCINATE) [Concomitant]
  5. NEXIUM [Concomitant]

REACTIONS (2)
  - NAUSEA [None]
  - VOMITING [None]
